FAERS Safety Report 10822852 (Version 1)
Quarter: 2015Q1

REPORT INFORMATION
  Report Type: Report from Study
  Country: US (occurrence: US)
  Receive Date: 20150218
  Receipt Date: 20150218
  Transmission Date: 20150721
  Serious: No
  Sender: FDA-Public Use
  Company Number: US-ABBVIE-14K-163-1307936-00

PATIENT
  Age: 29 Year
  Sex: Male
  Weight: 127.12 kg

DRUGS (6)
  1. FLUOXETINE [Concomitant]
     Active Substance: FLUOXETINE\FLUOXETINE HYDROCHLORIDE
     Indication: DEPRESSION
  2. VITAMIN D [Concomitant]
     Active Substance: CHOLECALCIFEROL
     Indication: VITAMIN SUPPLEMENTATION
  3. BUPROPION [Concomitant]
     Active Substance: BUPROPION
     Indication: DEPRESSION
  4. VYVANSE [Concomitant]
     Active Substance: LISDEXAMFETAMINE DIMESYLATE
     Indication: ATTENTION DEFICIT/HYPERACTIVITY DISORDER
  5. CLARITIN [Concomitant]
     Active Substance: LORATADINE
     Indication: HYPERSENSITIVITY
  6. HUMIRA [Suspect]
     Active Substance: ADALIMUMAB
     Indication: CROHN^S DISEASE
     Route: 058
     Dates: start: 201406

REACTIONS (3)
  - Fatigue [Not Recovered/Not Resolved]
  - Frequent bowel movements [Not Recovered/Not Resolved]
  - Drug effect incomplete [Not Recovered/Not Resolved]

NARRATIVE: CASE EVENT DATE: 201409
